FAERS Safety Report 18945838 (Version 6)
Quarter: 2021Q3

REPORT INFORMATION
  Report Type: Spontaneous
  Country: US (occurrence: US)
  Receive Date: 20210226
  Receipt Date: 20210824
  Transmission Date: 20211014
  Serious: Yes (Hospitalization, Other)
  Sender: FDA-Public Use
  Company Number: US-PFIZER INC-2021178649

PATIENT
  Age: 69 Year
  Sex: Female

DRUGS (4)
  1. IBRANCE [Suspect]
     Active Substance: PALBOCICLIB
     Indication: BREAST CANCER FEMALE
     Dosage: UNK
     Dates: start: 2021, end: 2021
  2. IBRANCE [Suspect]
     Active Substance: PALBOCICLIB
     Indication: SKIN MASS
  3. IBRANCE [Suspect]
     Active Substance: PALBOCICLIB
     Indication: BREAST CANCER FEMALE
  4. IBRANCE [Suspect]
     Active Substance: PALBOCICLIB
     Indication: LYMPHADENOPATHY
     Dosage: 75 MG, CYCLIC (DAILY WITH FOOD TAKE FOR 14 DAYS, THEN OFF FOR 14 DAYS)
     Route: 048
     Dates: start: 20210406

REACTIONS (1)
  - Pancytopenia [Unknown]

NARRATIVE: CASE EVENT DATE: 2021
